FAERS Safety Report 7731675-7 (Version None)
Quarter: 2011Q3

REPORT INFORMATION
  Report Type: 
  Country: None (occurrence: None)
  Receive Date: 20110906
  Receipt Date: 20110829
  Transmission Date: 20111222
  Serious: Yes (Hospitalization, Other)
  Sender: FDA-Public Use
  Company Number: US-PFIZER INC-2011202043

PATIENT
  Sex: Female

DRUGS (2)
  1. EFFEXOR [Suspect]
     Dosage: 75 MG, 1X/DAY AT NIGHT
     Route: 048
     Dates: start: 20010305
  2. EFFEXOR XR [Suspect]
     Dosage: 225 MG, 2X/DAY AT MORNING AND NIGHT
     Dates: start: 20010312

REACTIONS (8)
  - DEPRESSION [None]
  - POST-TRAUMATIC STRESS DISORDER [None]
  - NIGHTMARE [None]
  - AFFECTIVE DISORDER [None]
  - SUICIDAL IDEATION [None]
  - MOOD SWINGS [None]
  - INTENTIONAL SELF-INJURY [None]
  - BIPOLAR II DISORDER [None]
